FAERS Safety Report 9788435 (Version 1)
Quarter: 2013Q4

REPORT INFORMATION
  Report Type: Spontaneous
  Country: US (occurrence: US)
  Receive Date: 20131230
  Receipt Date: 20131230
  Transmission Date: 20140711
  Serious: Yes (Hospitalization)
  Sender: FDA-Public Use
  Company Number: US-PFIZER INC-2013371151

PATIENT
  Age: 71 Year
  Sex: Female
  Weight: 36.28 kg

DRUGS (2)
  1. CHANTIX [Suspect]
     Indication: SMOKING CESSATION THERAPY
     Dosage: 0.5 MG, 1X/DAY
     Route: 048
     Dates: start: 20131218
  2. CHANTIX [Suspect]
     Dosage: 0.5 MG, UNK
     Route: 048
     Dates: end: 20131222

REACTIONS (4)
  - Anxiety [Recovered/Resolved]
  - Irritability [Recovered/Resolved]
  - Dyspnoea [Recovered/Resolved]
  - Discomfort [Recovered/Resolved]
